FAERS Safety Report 9803464 (Version 5)
Quarter: 2014Q1

REPORT INFORMATION
  Report Type: Spontaneous
  Country: JP (occurrence: JP)
  Receive Date: 20140108
  Receipt Date: 20140331
  Transmission Date: 20141002
  Serious: Yes (Hospitalization)
  Sender: FDA-Public Use
  Company Number: JP-AMGEN-JPNSP2013086999

PATIENT
  Age: 64 Year
  Sex: Male

DRUGS (7)
  1. ARANESP [Suspect]
     Indication: NEPHROGENIC ANAEMIA
     Dosage: 15 MUG, QWK
     Route: 042
     Dates: start: 20130716, end: 20131029
  2. EPOETIN ALFA [Suspect]
     Indication: NEPHROGENIC ANAEMIA
     Dosage: 3000 IU, 3 TIMES/WK
     Route: 042
     Dates: start: 20131029
  3. HUMALOG [Concomitant]
     Indication: DIABETES MELLITUS
     Dosage: 4 DF, TID
     Route: 058
  4. MICARDIS [Concomitant]
     Indication: HYPERTENSION
     Dosage: 80 MG, QD
     Route: 048
  5. ATELEC [Concomitant]
     Indication: HYPERTENSION
     Dosage: 20 MG, BID
     Route: 048
  6. LASIX                              /00032601/ [Concomitant]
     Indication: HYPERTENSION
     Dosage: 40 MG, QD
     Route: 048
  7. TRAZENTA [Concomitant]
     Indication: DIABETES MELLITUS
     Dosage: 5 MG, QD
     Route: 048

REACTIONS (4)
  - Pneumonia [Recovered/Resolved]
  - Cardiac failure congestive [Recovered/Resolved]
  - Cardiac failure congestive [Recovered/Resolved]
  - Haemoglobin decreased [Recovering/Resolving]
